FAERS Safety Report 18849784 (Version 1)
Quarter: 2021Q1

REPORT INFORMATION
  Report Type: Report from Study
  Country: CA (occurrence: CA)
  Receive Date: 20210205
  Receipt Date: 20210205
  Transmission Date: 20210420
  Serious: Yes (Other)
  Sender: FDA-Public Use
  Company Number: CA-JNJFOC-20210146922

PATIENT
  Age: 16 Year
  Sex: Female
  Weight: 51.5 kg

DRUGS (2)
  1. REMICADE [Suspect]
     Active Substance: INFLIXIMAB
     Indication: CROHN^S DISEASE
     Route: 042
     Dates: start: 20180227
  2. REMICADE [Suspect]
     Active Substance: INFLIXIMAB
     Dosage: ON 27?JAN?2021, PATIENT RECEIVED 29TH REMICADE INFUSION OF 400 MG
     Route: 042
     Dates: start: 20210127

REACTIONS (3)
  - Crohn^s disease [Unknown]
  - Weight increased [Unknown]
  - Drug ineffective [Unknown]

NARRATIVE: CASE EVENT DATE: 20210113
